FAERS Safety Report 19973079 (Version 1)
Quarter: 2021Q4

REPORT INFORMATION
  Report Type: Other
  Country: US (occurrence: US)
  Receive Date: 20211020
  Receipt Date: 20211020
  Transmission Date: 20220304
  Serious: Yes (Death, Other)
  Sender: FDA-Public Use
  Company Number: US-ROCHE-2932541

PATIENT
  Sex: Male

DRUGS (52)
  1. OCREVUS [Suspect]
     Active Substance: OCRELIZUMAB
     Indication: Relapsing multiple sclerosis
     Dosage: ONGOING NO?DATE OF TREATMENT: 22/JUN/2018, 12/DEC/2018, 11/JUN/2019, 06/JUL/2020, 06/JAN/2021
     Route: 042
     Dates: start: 20170622, end: 20210111
  2. RITALIN [Concomitant]
     Active Substance: METHYLPHENIDATE HYDROCHLORIDE
     Dosage: TAKE IN IN AM AND NOON
     Route: 048
     Dates: start: 20201013
  3. RITALIN [Concomitant]
     Active Substance: METHYLPHENIDATE HYDROCHLORIDE
     Dosage: TAKE IN IN AM AND NOON
     Route: 048
     Dates: start: 20201113
  4. RITALIN [Concomitant]
     Active Substance: METHYLPHENIDATE HYDROCHLORIDE
     Dosage: TAKE IN IN AM AND NOON
     Route: 048
     Dates: start: 20201213
  5. RITALIN [Concomitant]
     Active Substance: METHYLPHENIDATE HYDROCHLORIDE
     Dosage: TAKE IN IN AM AND NOON
     Route: 048
     Dates: start: 20200714
  6. RITALIN [Concomitant]
     Active Substance: METHYLPHENIDATE HYDROCHLORIDE
     Dosage: TAKE IN IN AM AND NOON
     Route: 048
     Dates: start: 20200619
  7. RITALIN [Concomitant]
     Active Substance: METHYLPHENIDATE HYDROCHLORIDE
     Dosage: TAKE IN IN AM AND NOON
     Route: 048
     Dates: start: 20200421
  8. RITALIN [Concomitant]
     Active Substance: METHYLPHENIDATE HYDROCHLORIDE
     Dosage: TAKE IN IN AM AND NOON
     Route: 048
     Dates: start: 20200114
  9. RITALIN [Concomitant]
     Active Substance: METHYLPHENIDATE HYDROCHLORIDE
     Dosage: TAKE IN IN AM AND NOON
     Route: 048
     Dates: start: 20200214
  10. RITALIN [Concomitant]
     Active Substance: METHYLPHENIDATE HYDROCHLORIDE
     Dosage: TAKE IN IN AM AND NOON
     Route: 048
     Dates: start: 20200314
  11. RITALIN [Concomitant]
     Active Substance: METHYLPHENIDATE HYDROCHLORIDE
     Dosage: TAKE IN IN AM AND NOON
     Route: 048
     Dates: start: 20180730
  12. DELTASONE [Concomitant]
     Active Substance: PREDNISONE
     Route: 048
     Dates: start: 20200714
  13. DELTASONE [Concomitant]
     Active Substance: PREDNISONE
     Route: 048
     Dates: start: 20201013
  14. DELTASONE [Concomitant]
     Active Substance: PREDNISONE
     Route: 048
     Dates: start: 20190118
  15. PRAVACHOL [Concomitant]
     Active Substance: PRAVASTATIN SODIUM
     Route: 048
     Dates: start: 20200717
  16. GLUCOPHAGE [Concomitant]
     Active Substance: METFORMIN HYDROCHLORIDE
     Route: 048
     Dates: start: 20200709
  17. ZYRTEC (UNITED STATES) [Concomitant]
     Route: 048
     Dates: start: 20200709
  18. FLOMAX [Concomitant]
     Active Substance: TAMSULOSIN HYDROCHLORIDE
     Route: 048
     Dates: start: 20200709
  19. FLONASE [Concomitant]
     Active Substance: FLUTICASONE PROPIONATE
     Dosage: 50 MCG/ ACTUATION NASAL SPRAY
     Dates: start: 20200427
  20. PRILOSEC [Concomitant]
     Active Substance: OMEPRAZOLE MAGNESIUM
     Route: 048
     Dates: start: 20200421
  21. SINGULAIR [Concomitant]
     Active Substance: MONTELUKAST SODIUM
     Route: 048
     Dates: start: 20200316
  22. RESTORIL [Concomitant]
     Active Substance: TEMAZEPAM
     Route: 048
     Dates: start: 20200316
  23. XARELTO [Concomitant]
     Active Substance: RIVAROXABAN
     Route: 048
     Dates: start: 20200316
  24. HYTONE (UNITED STATES) [Concomitant]
     Dates: start: 20191009
  25. MIRALAX [Concomitant]
     Active Substance: POLYETHYLENE GLYCOL 3350
     Dates: start: 20191009
  26. ANTIVERT [Concomitant]
     Active Substance: MECLIZINE HYDROCHLORIDE
     Route: 048
     Dates: start: 20190925
  27. FLOVENT HFA [Concomitant]
     Active Substance: FLUTICASONE PROPIONATE
  28. PROAIR HFA [Concomitant]
     Active Substance: ALBUTEROL SULFATE
  29. SELENIUM SULFIDE [Concomitant]
     Active Substance: SELENIUM SULFIDE
  30. SYNTHROID [Concomitant]
     Active Substance: LEVOTHYROXINE SODIUM
  31. ABILIFY [Concomitant]
     Active Substance: ARIPIPRAZOLE
  32. LINZESS [Concomitant]
     Active Substance: LINACLOTIDE
  33. FISH OIL;OMEGA-3 [Concomitant]
     Route: 048
  34. ZOFRAN [Concomitant]
     Active Substance: ONDANSETRON HYDROCHLORIDE
  35. ELOCON [Concomitant]
     Active Substance: MOMETASONE FUROATE
  36. VITAMIN B12 [Concomitant]
     Active Substance: CYANOCOBALAMIN
  37. VITAMIN D3 [Concomitant]
     Active Substance: CHOLECALCIFEROL
  38. ZANAFLEX [Concomitant]
     Active Substance: TIZANIDINE HYDROCHLORIDE
     Route: 048
  39. HORIZANT [Concomitant]
     Active Substance: GABAPENTIN ENACARBIL
  40. LIORESAL [Concomitant]
     Active Substance: BACLOFEN
  41. CYMBALTA [Concomitant]
     Active Substance: DULOXETINE HYDROCHLORIDE
  42. MYCOLOG [Concomitant]
     Active Substance: GRAMICIDIN\NEOMYCIN SULFATE\NYSTATIN\TRIAMCINOLONE ACETONIDE
  43. PHENERGAN [Concomitant]
     Active Substance: PROMETHAZINE HYDROCHLORIDE
  44. LIDODERM [Concomitant]
     Active Substance: LIDOCAINE
  45. INDERAL [Concomitant]
     Active Substance: PROPRANOLOL HYDROCHLORIDE
  46. KENALOG [Concomitant]
     Active Substance: TRIAMCINOLONE ACETONIDE
  47. BACTROBAN [Concomitant]
     Active Substance: MUPIROCIN\MUPIROCIN CALCIUM
  48. VALTREX [Concomitant]
     Active Substance: VALACYCLOVIR HYDROCHLORIDE
  49. KADIAN [Concomitant]
     Active Substance: MORPHINE SULFATE
  50. MORPHINE SULFATE [Concomitant]
     Active Substance: MORPHINE SULFATE
  51. PRINIVIL [Concomitant]
     Active Substance: LISINOPRIL
  52. ADVAIR DISKUS [Concomitant]
     Active Substance: FLUTICASONE PROPIONATE\SALMETEROL XINAFOATE

REACTIONS (3)
  - Death [Fatal]
  - Pneumonia viral [Unknown]
  - Bronchitis [Unknown]
